FAERS Safety Report 22167298 (Version 3)
Quarter: 2023Q2

REPORT INFORMATION
  Report Type: Spontaneous
  Country: US (occurrence: US)
  Receive Date: 20230403
  Receipt Date: 20230621
  Transmission Date: 20230722
  Serious: No
  Sender: FDA-Public Use
  Company Number: US-PFIZER INC-PV202300059641

PATIENT
  Age: 53 Year
  Sex: Female

DRUGS (1)
  1. XELJANZ XR [Suspect]
     Active Substance: TOFACITINIB CITRATE
     Indication: Rheumatoid arthritis
     Dosage: 11 MG, 1X/DAY
     Route: 048
     Dates: start: 20230306

REACTIONS (12)
  - Malaise [Unknown]
  - Pain [Recovering/Resolving]
  - Depressed mood [Unknown]
  - Anger [Unknown]
  - Joint range of motion decreased [Unknown]
  - Dyspnoea [Unknown]
  - Product dose omission issue [Unknown]
  - Headache [Unknown]
  - Hypertension [Unknown]
  - Peripheral swelling [Unknown]
  - Gait inability [Unknown]
  - Illness [Unknown]

NARRATIVE: CASE EVENT DATE: 20230301
